FAERS Safety Report 5247202-2 (Version None)
Quarter: 2007Q1

REPORT INFORMATION
  Report Type: 
  Country: None (occurrence: None)
  Receive Date: 20070221
  Receipt Date: 20070208
  Transmission Date: 20070707
  Serious: Yes (Other)
  Sender: FDA-Public Use
  Company Number: 228461

PATIENT
  Sex: Male

DRUGS (1)
  1. SOMATROPIN(SOMATROPIN) UNKNOWN [Suspect]

REACTIONS (1)
  - RHABDOMYOLYSIS [None]
